FAERS Safety Report 6435284-1 (Version None)
Quarter: 2009Q4

REPORT INFORMATION
  Report Type: 
  Country: None (occurrence: None)
  Receive Date: 20091110
  Receipt Date: 20091029
  Transmission Date: 20100525
  Serious: Yes (Hospitalization)
  Sender: FDA-Public Use
  Company Number: SE-ELI_LILLY_AND_COMPANY-SE200910007493

PATIENT
  Sex: Male
  Weight: 89 kg

DRUGS (10)
  1. GEMCITABINE HCL [Suspect]
     Indication: NON-SMALL CELL LUNG CANCER
     Dosage: 2600 MG, OTHER (ON DAY ONE AND EIGHT)
     Route: 042
     Dates: start: 20090929
  2. CARBOPLATIN [Suspect]
     Indication: NON-SMALL CELL LUNG CANCER
     Dosage: 390 MG, OTHER
     Route: 042
     Dates: start: 20090929
  3. ALLOPURINOL [Concomitant]
     Indication: GOUT
     Dates: start: 20090806
  4. PREDNISOLONE [Concomitant]
     Indication: INFLAMMATION
     Dates: start: 20090923
  5. FELODIPINE [Concomitant]
     Indication: HYPERTENSION
     Dates: start: 20090210
  6. RAMIPRIL [Concomitant]
     Indication: HYPERTENSION
     Dates: start: 20090901
  7. PARACETAMOL [Concomitant]
     Indication: PAIN
     Dates: start: 20090831
  8. ATENOLOL [Concomitant]
     Indication: HYPERTENSION
     Dates: start: 20090210
  9. ACETYLSALICYLIC ACID [Concomitant]
     Indication: THROMBOSIS PROPHYLAXIS
     Dates: start: 20090210
  10. OMEPRAZOLE [Concomitant]
     Indication: PROPHYLAXIS
     Dates: start: 20091006

REACTIONS (2)
  - CONSTIPATION [None]
  - GASTRIC ULCER [None]
